FAERS Safety Report 9140289 (Version 1)
Quarter: 2013Q1

REPORT INFORMATION
  Report Type: Spontaneous
  Country: MX (occurrence: MX)
  Receive Date: 20130305
  Receipt Date: 20130305
  Transmission Date: 20140127
  Serious: Yes (Hospitalization, Other)
  Sender: FDA-Public Use
  Company Number: PHHY2013MX021204

PATIENT
  Age: 77 Year
  Sex: Female

DRUGS (15)
  1. ACLASTA [Suspect]
     Indication: OSTEOPOROSIS
     Dosage: 5 MG, ANNUALLY
     Route: 042
  2. CRONOCAPS [Concomitant]
     Indication: SLEEP DISORDER
     Dosage: UNK UKN, UNK
     Dates: start: 201207
  3. LEXOTAN [Concomitant]
     Indication: SLEEP DISORDER
     Dosage: UNK UKN, UNK
     Dates: start: 2011
  4. ASPIRIN PROTECT [Concomitant]
     Indication: CARDIAC DISORDER
     Dosage: UNK UKN, UNK
  5. STILNOX [Concomitant]
     Indication: SLEEP DISORDER
     Dosage: UNK UKN, UNK
  6. OSCAL D                            /07451701/ [Concomitant]
     Indication: OSTEOPOROSIS
     Dosage: UNK UKN, UNK
     Dates: start: 2011
  7. EFFEXOR [Concomitant]
     Indication: DEPRESSION
     Dosage: UNK UKN, UNK
     Dates: start: 2008
  8. REMERON [Concomitant]
     Indication: SLEEP DISORDER
     Dosage: UNK UKN, UNK
     Dates: start: 201208
  9. SALOFALK ^AVENTIS^ [Concomitant]
     Indication: DYSPEPSIA
     Dosage: UNK UKN, UNK
     Dates: start: 2009
  10. NORFENON [Concomitant]
     Indication: TACHYCARDIA
     Dosage: UNK UKN, UNK
     Dates: start: 201302
  11. CARDURA [Concomitant]
     Indication: HYDRONEPHROSIS
     Dosage: UNK UKN, UNK
     Dates: start: 2008
  12. LIPITOR [Concomitant]
     Indication: BLOOD CHOLESTEROL INCREASED
     Dosage: UNK UKN, UNK
     Dates: start: 2012
  13. TAFIROL 1 G [Concomitant]
     Indication: PAIN
     Dosage: UNK UKN, UNK
     Dates: start: 201302
  14. OMEPRAZOLE [Concomitant]
     Indication: GASTRIC DISORDER
     Dosage: UNK UKN, UNK
  15. PRIMIDONE [Concomitant]
     Indication: HEAD TITUBATION
     Dosage: UNK UKN, UNK
     Dates: start: 2010

REACTIONS (3)
  - Arthropathy [Unknown]
  - Fall [Unknown]
  - Back disorder [Not Recovered/Not Resolved]
